FAERS Safety Report 8124508-0 (Version None)
Quarter: 2012Q1

REPORT INFORMATION
  Report Type: 
  Country: None (occurrence: None)
  Receive Date: 20120209
  Receipt Date: 20120129
  Transmission Date: 20120608
  Serious: Yes (Death, Hospitalization, Other)
  Sender: FDA-Public Use
  Company Number: US-ELI_LILLY_AND_COMPANY-US201201009194

PATIENT
  Sex: Female

DRUGS (8)
  1. FORTEO [Suspect]
     Indication: OSTEOPOROSIS
     Dosage: 20 UG, QD
  2. CALCIUM VITAMINE D3 [Concomitant]
     Dosage: UNK, UNKNOWN
  3. ACTONEL [Concomitant]
     Dosage: UNK, UNKNOWN
  4. ASPIRIN [Concomitant]
     Dosage: UNK, UNKNOWN
  5. NEXIUM [Concomitant]
     Dosage: 40 MG, UNKNOWN
  6. MORPHINE [Concomitant]
  7. METHIMAZOLE [Concomitant]
     Dosage: 5 MG, UNKNOWN
  8. FLECAINIDE ACETATE [Concomitant]
     Dosage: 50 MG, BID

REACTIONS (4)
  - ASTHENIA [None]
  - INCOHERENT [None]
  - DEATH [None]
  - INTESTINAL OBSTRUCTION [None]
